FAERS Safety Report 4750384-X (Version None)
Quarter: 2005Q3

REPORT INFORMATION
  Report Type: 
  Country: None (occurrence: None)
  Receive Date: 20050818
  Receipt Date: 20050809
  Transmission Date: 20060218
  Serious: Yes (Death, Life-Threatening, Other)
  Sender: FDA-Public Use
  Company Number: 2005-03-0668

PATIENT
  Age: 55 Year
  Sex: Male
  Weight: 83 kg

DRUGS (10)
  1. PEG-INTRON [Suspect]
     Indication: HEPATITIS C
     Dosage: 100 MCG QW SUBCUTANEOUS
     Route: 058
     Dates: start: 20050221, end: 20050307
  2. REBETOL [Suspect]
     Indication: HEPATITIS C
     Dosage: 800 MG ORAL
     Route: 048
     Dates: start: 20050221, end: 20050307
  3. URSO CAPSULES [Concomitant]
  4. ASCORBIC ACID CAPSULE [Concomitant]
  5. JUVELA CAPSULES [Concomitant]
  6. WARFARIN SODIUM [Concomitant]
  7. VOLTAREN SUPPOSITORIES RECTAL [Concomitant]
  8. PANALDINE TABLETS [Concomitant]
  9. DIGOSIN TABLETS [Concomitant]
  10. RYTHMODAN CAPSULES [Concomitant]

REACTIONS (6)
  - CORONARY ARTERY THROMBOSIS [None]
  - HYPERTHERMIA [None]
  - LOSS OF CONSCIOUSNESS [None]
  - RESPIRATORY ARREST [None]
  - VENTRICULAR FIBRILLATION [None]
  - VENTRICULAR TACHYCARDIA [None]
